FAERS Safety Report 7525056-9 (Version None)
Quarter: 2011Q2

REPORT INFORMATION
  Report Type: 
  Country: None (occurrence: None)
  Receive Date: 20110606
  Receipt Date: 20110523
  Transmission Date: 20111010
  Serious: Yes (Hospitalization)
  Sender: FDA-Public Use
  Company Number: US-ELI_LILLY_AND_COMPANY-US200909002845

PATIENT
  Sex: Female

DRUGS (4)
  1. FORTEO [Suspect]
     Indication: OSTEOPOROSIS
     Dosage: 20 UG, DAILY (1/D)
     Route: 065
     Dates: start: 20090731
  2. FORTEO [Suspect]
     Dosage: 20 UG, DAILY (1/D)
     Route: 065
  3. FORTEO [Suspect]
     Dosage: 20 UG, DAILY (1/D)
  4. FORTEO [Suspect]
     Dosage: 20 UG, QD

REACTIONS (9)
  - URINARY RETENTION [None]
  - ANAEMIA [None]
  - DIARRHOEA [None]
  - MALAISE [None]
  - ASTHENIA [None]
  - NEPHROLITHIASIS [None]
  - ABDOMINAL DISTENSION [None]
  - MUSCLE SPASMS [None]
  - FLATULENCE [None]
